FAERS Safety Report 9781096 (Version 2)
Quarter: 2014Q1

REPORT INFORMATION
  Report Type: Spontaneous
  Country: US (occurrence: None)
  Receive Date: 20131220
  Receipt Date: 20140314
  Transmission Date: 20141002
  Serious: Yes (Hospitalization)
  Sender: FDA-Public Use
  Company Number: AUR-APL-2013-10457

PATIENT
  Age: 49 Year
  Sex: Female
  Weight: 46.26 kg

DRUGS (7)
  1. HYDROCHLOROTHIAZIDE [Suspect]
     Indication: HYPERTENSION
  2. ZOLOFT [Suspect]
     Indication: DEPRESSION
     Dates: start: 2003, end: 2013
  3. ZOLOFT [Suspect]
     Indication: POST-TRAUMATIC STRESS DISORDER
     Dates: start: 2003, end: 2013
  4. ABILIFY [Suspect]
     Indication: MANIA
  5. ZANTAC (RANITIDINE HYDROCHLORIDE) [Suspect]
     Indication: MIGRAINE
  6. LORTAB [Suspect]
     Indication: MIGRAINE
  7. BUTALBITAL/ASPIRIN/CAFFEINE [Suspect]
     Indication: MIGRAINE

REACTIONS (5)
  - Mania [None]
  - Feeling abnormal [None]
  - Pain in extremity [None]
  - Malaise [None]
  - Drug ineffective [None]
